FAERS Safety Report 12372896 (Version 3)
Quarter: 2016Q2

REPORT INFORMATION
  Report Type: Spontaneous
  Country: JP (occurrence: JP)
  Receive Date: 20160516
  Receipt Date: 20160526
  Transmission Date: 20160815
  Serious: Yes (Hospitalization, Other)
  Sender: FDA-Public Use
  Company Number: JP-SA-2016SA092402

PATIENT
  Age: 66 Year
  Sex: Female

DRUGS (2)
  1. CISPLATIN. [Concomitant]
     Active Substance: CISPLATIN
     Indication: CERVIX CARCINOMA
     Route: 041
  2. FUROSEMIDE. [Suspect]
     Active Substance: FUROSEMIDE
     Indication: UTERINE CANCER
     Route: 040

REACTIONS (3)
  - Ureteric rupture [Unknown]
  - Abdominal pain [Unknown]
  - Computerised tomogram abnormal [Unknown]
